FAERS Safety Report 7157262-X (Version None)
Quarter: 2010Q4

REPORT INFORMATION
  Report Type: 
  Country: None (occurrence: None)
  Receive Date: 20101129
  Receipt Date: 20101110
  Transmission Date: 20110411
  Serious: Yes (Hospitalization, Other)
  Sender: FDA-Public Use
  Company Number: 20100522

PATIENT
  Age: 28 Year
  Sex: Male

DRUGS (6)
  1. FUROSEMIDE [Suspect]
     Dosage: 40 MG, 20 MG, 80 MG, 40 MG INTRAVENOUS
     Route: 042
  2. FUROSEMIDE [Suspect]
     Indication: CARDIOMYOPATHY
     Dosage: 40 MG DAILY
  3. FUROSEMIDE [Suspect]
     Dosage: 20 MG ONCE ORAL
     Route: 048
  4. ENALAPRIL MALEATE [Concomitant]
  5. AMOXICILLIN [Concomitant]
  6. LINCOMYCIN [Concomitant]

REACTIONS (7)
  - BACTERAEMIA [None]
  - HEART RATE INCREASED [None]
  - INFECTION [None]
  - RENAL FAILURE ACUTE [None]
  - RESPIRATORY RATE INCREASED [None]
  - STEVENS-JOHNSON SYNDROME [None]
  - THROMBOSIS [None]
